FAERS Safety Report 5254922-2 (Version None)
Quarter: 2007Q1

REPORT INFORMATION
  Report Type: 
  Country: None (occurrence: None)
  Receive Date: 20070302
  Receipt Date: 20070302
  Transmission Date: 20070707
  Serious: Yes (Other)
  Sender: FDA-Public Use
  Company Number: None

PATIENT
  Age: 3 Year
  Sex: Female
  Weight: 17.4635 kg

DRUGS (9)
  1. PROMETHAZINE DM [Suspect]
     Indication: COUGH
     Dosage: 1/2 TEASPOON 4 TIMES A DAY PO
     Route: 048
     Dates: start: 20070227, end: 20070228
  2. PROMETHAZINE DM [Suspect]
     Indication: UPPER RESPIRATORY TRACT INFECTION
     Dosage: 1/2 TEASPOON 4 TIMES A DAY PO
     Route: 048
     Dates: start: 20070227, end: 20070228
  3. PULMICORT [Concomitant]
  4. ALBUTEROL [Concomitant]
  5. VITAMIN [Concomitant]
  6. SINGULAIR [Concomitant]
  7. MOTRIN [Concomitant]
  8. INFANT TYLENOL [Concomitant]
  9. PREDNISOLONE [Concomitant]

REACTIONS (5)
  - COUGH [None]
  - DYSKINESIA [None]
  - INSOMNIA [None]
  - MUSCLE TWITCHING [None]
  - POOR QUALITY SLEEP [None]
